FAERS Safety Report 9295591 (Version 1)
Quarter: 2013Q1

REPORT INFORMATION
  Report Type: Spontaneous
  Country: US (occurrence: US)
  Receive Date: 20130103
  Receipt Date: 20130103
  Transmission Date: 20140127
  Serious: Yes (Other)
  Sender: FDA-Public Use
  Company Number: DSA_56150_2012

PATIENT
  Sex: Male
  Weight: 57.61 kg

DRUGS (2)
  1. XENAZINE [Suspect]
     Indication: HUNTINGTON^S DISEASE
     Route: 048
     Dates: start: 20111228, end: 201204
  2. XANAX [Concomitant]

REACTIONS (2)
  - Self-injurious ideation [None]
  - Crying [None]
